FAERS Safety Report 5152820-6 (Version None)
Quarter: 2006Q4

REPORT INFORMATION
  Report Type: 
  Country: None (occurrence: None)
  Receive Date: 20060918
  Receipt Date: 20060525
  Transmission Date: 20070319
  Serious: Yes (Other)
  Sender: FDA-Public Use
  Company Number: PHEH2006US06870

PATIENT
  Age: 54 Year
  Sex: Female

DRUGS (4)
  1. FEMARA [Suspect]
     Indication: BREAST CANCER
     Dosage: 2.5 MG, QD, ORAL
     Route: 048
     Dates: start: 20060302
  2. LOTREL [Concomitant]
  3. ATIVAN [Concomitant]
  4. MULTIVITAMINS AND IRON (NO INGREDIENTS/SUBSTANCES) [Concomitant]

REACTIONS (5)
  - DEPRESSION [None]
  - FATIGUE [None]
  - MYALGIA [None]
  - PHARYNGEAL OEDEMA [None]
  - SUICIDAL IDEATION [None]
